FAERS Safety Report 15227383 (Version 1)
Quarter: 2018Q3

REPORT INFORMATION
  Report Type: Spontaneous
  Country: US (occurrence: US)
  Receive Date: 20180801
  Receipt Date: 20180801
  Transmission Date: 20181010
  Serious: No
  Sender: FDA-Public Use
  Company Number: US-MYLANLABS-2018M1051646

PATIENT
  Sex: Female

DRUGS (1)
  1. ESTRADIOL VAGINAL CREAM USP [Suspect]
     Active Substance: ESTRADIOL
     Indication: ENDOMETRIAL CANCER
     Route: 067
     Dates: start: 20180622

REACTIONS (2)
  - Application site pain [Recovered/Resolved]
  - Wrong technique in product usage process [Not Recovered/Not Resolved]
